FAERS Safety Report 22353977 (Version 1)
Quarter: 2023Q2

REPORT INFORMATION
  Report Type: Spontaneous
  Country: US (occurrence: US)
  Receive Date: 20230523
  Receipt Date: 20230523
  Transmission Date: 20230721
  Serious: Yes (Other)
  Sender: FDA-Public Use
  Company Number: US-009507513-2305USA006143

PATIENT
  Sex: Male

DRUGS (2)
  1. KEYTRUDA [Suspect]
     Active Substance: PEMBROLIZUMAB
     Dosage: UNK
  2. INLYTA [Suspect]
     Active Substance: AXITINIB
     Dosage: 2 TABLETS, QD
     Route: 048

REACTIONS (5)
  - Nephrectomy [Unknown]
  - Radiotherapy [Unknown]
  - Pruritus [Unknown]
  - Stomatitis [Unknown]
  - Hypertension [Unknown]
